FAERS Safety Report 11486629 (Version 5)
Quarter: 2016Q2

REPORT INFORMATION
  Report Type: Spontaneous
  Country: US (occurrence: US)
  Receive Date: 20150910
  Receipt Date: 20160630
  Transmission Date: 20160815
  Serious: No
  Sender: FDA-Public Use
  Company Number: US-PFIZER INC-2015282107

PATIENT
  Age: 61 Year
  Sex: Male
  Weight: 77 kg

DRUGS (12)
  1. CARAFATE [Concomitant]
     Active Substance: SUCRALFATE
     Dosage: 1 G, 3X/DAY(TAKEN ON AN EMPTY STOMACH)
     Route: 048
     Dates: start: 20150828
  2. PRINIVIL [Concomitant]
     Active Substance: LISINOPRIL
     Dosage: 2.5 MG, DAILY
     Route: 048
     Dates: start: 20160506
  3. ZESTRIL [Concomitant]
     Active Substance: LISINOPRIL
     Dosage: 2.5 MG, DAILY
     Route: 048
     Dates: start: 20160506
  4. LYRICA [Suspect]
     Active Substance: PREGABALIN
     Indication: DIABETIC NEUROPATHY
     Dosage: 200 MG, 3X/DAY
     Route: 048
     Dates: start: 2012, end: 20150818
  5. CELEXA [Concomitant]
     Active Substance: CITALOPRAM HYDROBROMIDE
     Dosage: 10 MG, DAILY
     Route: 048
     Dates: start: 20160506
  6. LYRICA [Suspect]
     Active Substance: PREGABALIN
     Indication: NEUROPATHY PERIPHERAL
  7. KLONOPIN [Concomitant]
     Active Substance: CLONAZEPAM
     Dosage: 1/2-1 TABLET QHS
     Route: 048
     Dates: start: 20160506
  8. LYRICA [Suspect]
     Active Substance: PREGABALIN
     Indication: POLYNEUROPATHY
  9. GLUCOTROL [Concomitant]
     Active Substance: GLIPIZIDE
     Dosage: 10 MG, 2X/DAY (WITH BREAKFAST AND DINNER)
     Route: 048
     Dates: start: 20160506
  10. NORCO [Concomitant]
     Active Substance: ACETAMINOPHEN\HYDROCODONE BITARTRATE
     Dosage: HYDROCODONE-10MG,ACETAAMINOPHEN-325MG, 1 TABLET EVERY 6 HOURS AS NEED
     Route: 048
     Dates: start: 20160506
  11. GLUCOPHAGE [Concomitant]
     Active Substance: METFORMIN HYDROCHLORIDE
     Dosage: 1000 MG, 2X/DAY (WITH BREAKFAST AND DINNER)
     Route: 048
     Dates: start: 20160506
  12. CORGARD [Concomitant]
     Active Substance: NADOLOL
     Dosage: 20 MG, 1X/DAY BREAKFAST
     Route: 048
     Dates: start: 20160506

REACTIONS (6)
  - Dizziness [Not Recovered/Not Resolved]
  - Drug effect incomplete [Unknown]
  - Asthenia [Not Recovered/Not Resolved]
  - Pain [Not Recovered/Not Resolved]
  - Drug withdrawal syndrome [Not Recovered/Not Resolved]
  - Diarrhoea [Not Recovered/Not Resolved]

NARRATIVE: CASE EVENT DATE: 20150819
